FAERS Safety Report 10540504 (Version 2)
Quarter: 2014Q4

REPORT INFORMATION
  Report Type: Spontaneous
  Country: BR (occurrence: BR)
  Receive Date: 20141024
  Receipt Date: 20141104
  Transmission Date: 20150529
  Serious: Yes (Other)
  Sender: FDA-Public Use
  Company Number: BR-PFIZER INC-2014291666

PATIENT
  Age: 39 Year
  Sex: Female

DRUGS (1)
  1. DEPO-PROVERA [Suspect]
     Active Substance: MEDROXYPROGESTERONE ACETATE
     Indication: CONTRACEPTION
     Dosage: 150 MG, UNK
     Dates: start: 201409

REACTIONS (9)
  - Abscess rupture [Unknown]
  - Injection site pruritus [Unknown]
  - Injection site swelling [Unknown]
  - Injection site inflammation [Unknown]
  - Pain [Recovered/Resolved]
  - Product quality issue [Unknown]
  - Injection site induration [Unknown]
  - Injection site abscess [Unknown]
  - Injection site erythema [Unknown]

NARRATIVE: CASE EVENT DATE: 2014
